FAERS Safety Report 9586456 (Version 1)
Quarter: 2013Q3

REPORT INFORMATION
  Report Type: Spontaneous
  Country: US (occurrence: None)
  Receive Date: 20130926
  Receipt Date: 20130926
  Transmission Date: 20140515
  Serious: Yes (Other)
  Sender: FDA-Public Use
  Company Number: 2013-01380

PATIENT
  Age: 25 Year
  Sex: Male

DRUGS (5)
  1. VALPROIC ACID [Suspect]
     Indication: EPILEPSY
  2. TOPIRAMATE [Suspect]
  3. LEVETIRACETAM (UNKNOWN) (LEVETIRACETAM) [Suspect]
  4. PHENOBARBITAL [Suspect]
  5. PHENYTOIN [Suspect]

REACTIONS (1)
  - Toxic encephalopathy [None]
